FAERS Safety Report 19585252 (Version 2)
Quarter: 2021Q3

REPORT INFORMATION
  Report Type: Spontaneous
  Country: GB (occurrence: GB)
  Receive Date: 20210721
  Receipt Date: 20210730
  Transmission Date: 20211014
  Serious: Yes (Other)
  Sender: FDA-Public Use
  Company Number: GB-JNJFOC-20210737287

PATIENT
  Age: 61 Year
  Sex: Female

DRUGS (1)
  1. SIMPONI [Suspect]
     Active Substance: GOLIMUMAB
     Indication: PSORIATIC ARTHROPATHY
     Route: 058

REACTIONS (6)
  - Dementia [Unknown]
  - Anxiety [Unknown]
  - Arrhythmia [Unknown]
  - Off label use [Unknown]
  - Adverse drug reaction [Unknown]
  - Inappropriate schedule of product administration [Unknown]
